FAERS Safety Report 21390961 (Version 4)
Quarter: 2022Q4

REPORT INFORMATION
  Report Type: Spontaneous
  Country: US (occurrence: US)
  Receive Date: 20220929
  Receipt Date: 20221208
  Transmission Date: 20230113
  Serious: Yes (Hospitalization)
  Sender: FDA-Public Use
  Company Number: US-BRISTOL-MYERS SQUIBB COMPANY-2022-113399

PATIENT
  Age: 82 Year
  Sex: Female

DRUGS (11)
  1. POMALYST [Suspect]
     Active Substance: POMALIDOMIDE
     Indication: Plasma cell myeloma
     Dosage: TAKE 1 CAPSULE BY MOUTH 3 WEEKS ON AND 1 WEEK OFF
     Route: 048
     Dates: start: 20220823, end: 202209
  2. POMALYST [Suspect]
     Active Substance: POMALIDOMIDE
     Dosage: TAKE 1 CAPSULE BY MOUTH DAILY FOR 21 DAYS AND THEN OFF FOR 7 DAYS WITH CYCLE REPEATING
     Route: 048
     Dates: start: 20220823
  3. POMALYST [Suspect]
     Active Substance: POMALIDOMIDE
     Dosage: TAKE ONE CAPSULE BY MOUTH DAILY FOR 21 DAYS AND THEN OFF FOR 7 DAYS
     Route: 048
     Dates: start: 20221012
  4. CICLOPIROX SOL [Concomitant]
     Indication: Product used for unknown indication
  5. KETOCONAZOLE CRE [Concomitant]
     Indication: Product used for unknown indication
  6. REVLIMID [Concomitant]
     Active Substance: LENALIDOMIDE
     Indication: Product used for unknown indication
  7. REVLIMID [Concomitant]
     Active Substance: LENALIDOMIDE
  8. TYLENOL [Concomitant]
     Active Substance: ACETAMINOPHEN
     Indication: Product used for unknown indication
  9. DEXAMETHASONE [Concomitant]
     Active Substance: DEXAMETHASONE
  10. GABAPENTIN [Concomitant]
     Active Substance: GABAPENTIN
  11. PREVIDENT [Concomitant]
     Active Substance: SODIUM FLUORIDE
     Indication: Product used for unknown indication
     Dosage: 500 PLUS
     Route: 065

REACTIONS (8)
  - Fatigue [Unknown]
  - Swollen tongue [Unknown]
  - Mouth swelling [Unknown]
  - Nasal oedema [Unknown]
  - Gingival pain [Unknown]
  - Gingival pain [Unknown]
  - Toothache [Unknown]
  - Alopecia [Unknown]

NARRATIVE: CASE EVENT DATE: 20220901
